FAERS Safety Report 23983192 (Version 1)
Quarter: 2024Q2

REPORT INFORMATION
  Report Type: Spontaneous
  Country: US (occurrence: US)
  Receive Date: 20240617
  Receipt Date: 20240617
  Transmission Date: 20240715
  Serious: Yes (Other)
  Sender: FDA-Public Use
  Company Number: US-DRL-USA-LIT/USA/24/0008486

PATIENT
  Age: 38 Year
  Sex: Female

DRUGS (26)
  1. DOCETAXEL [Suspect]
     Active Substance: DOCETAXEL\DOCETAXEL ANHYDROUS
     Indication: HER2 negative breast cancer
  2. DOCETAXEL [Suspect]
     Active Substance: DOCETAXEL\DOCETAXEL ANHYDROUS
     Indication: Adenocarcinoma
  3. TAMOXIFEN [Suspect]
     Active Substance: TAMOXIFEN
     Indication: HER2 negative breast cancer
  4. TAMOXIFEN [Suspect]
     Active Substance: TAMOXIFEN
     Indication: Adenocarcinoma
  5. GEMCITABINE [Suspect]
     Active Substance: GEMCITABINE
     Indication: Supportive care
  6. GEMCITABINE [Suspect]
     Active Substance: GEMCITABINE
     Indication: HER2 negative breast cancer
  7. GEMCITABINE [Suspect]
     Active Substance: GEMCITABINE
     Indication: Adenocarcinoma
  8. CAPECITABINE [Suspect]
     Active Substance: CAPECITABINE
     Indication: HER2 negative breast cancer
  9. CAPECITABINE [Suspect]
     Active Substance: CAPECITABINE
     Indication: Adenocarcinoma
  10. TRASTUZUMAB [Concomitant]
     Active Substance: TRASTUZUMAB
     Indication: Supportive care
  11. TRASTUZUMAB [Concomitant]
     Active Substance: TRASTUZUMAB
     Indication: HER2 negative breast cancer
  12. TRASTUZUMAB [Concomitant]
     Active Substance: TRASTUZUMAB
     Indication: Adenocarcinoma
  13. ZOMETA [Concomitant]
     Active Substance: ZOLEDRONIC ACID
     Indication: Supportive care
  14. ZOMETA [Concomitant]
     Active Substance: ZOLEDRONIC ACID
     Indication: HER2 negative breast cancer
  15. ZOMETA [Concomitant]
     Active Substance: ZOLEDRONIC ACID
     Indication: Adenocarcinoma
  16. GOSERELIN [Concomitant]
     Active Substance: GOSERELIN
     Indication: HER2 negative breast cancer
  17. GOSERELIN [Concomitant]
     Active Substance: GOSERELIN
     Indication: Adenocarcinoma
  18. ANASTROZOLE [Concomitant]
     Active Substance: ANASTROZOLE
     Indication: HER2 negative breast cancer
  19. ANASTROZOLE [Concomitant]
     Active Substance: ANASTROZOLE
     Indication: Adenocarcinoma
  20. LAPATINIB [Concomitant]
     Active Substance: LAPATINIB
     Indication: HER2 negative breast cancer
  21. LAPATINIB [Concomitant]
     Active Substance: LAPATINIB
     Indication: Adenocarcinoma
  22. NERATINIB [Concomitant]
     Active Substance: NERATINIB
     Indication: HER2 negative breast cancer
  23. NERATINIB [Concomitant]
     Active Substance: NERATINIB
     Indication: Adenocarcinoma
  24. ADO-TRASTUZUMAB EMTANSINE [Concomitant]
     Active Substance: ADO-TRASTUZUMAB EMTANSINE
     Indication: Supportive care
  25. ADO-TRASTUZUMAB EMTANSINE [Concomitant]
     Active Substance: ADO-TRASTUZUMAB EMTANSINE
     Indication: HER2 negative breast cancer
  26. ADO-TRASTUZUMAB EMTANSINE [Concomitant]
     Active Substance: ADO-TRASTUZUMAB EMTANSINE
     Indication: Adenocarcinoma

REACTIONS (6)
  - Malignant neoplasm progression [Unknown]
  - Treatment failure [Unknown]
  - Hemiparesis [Recovering/Resolving]
  - Limb deformity [Recovering/Resolving]
  - Palmar-plantar erythrodysaesthesia syndrome [Recovering/Resolving]
  - Lung disorder [Unknown]
